FAERS Safety Report 13564276 (Version 6)
Quarter: 2018Q2

REPORT INFORMATION
  Report Type: Spontaneous
  Country: JP (occurrence: JP)
  Receive Date: 20170519
  Receipt Date: 20180614
  Transmission Date: 20180711
  Serious: Yes (Death, Other)
  Sender: FDA-Public Use
  Company Number: JP-009507513-1705JPN001387J

PATIENT
  Age: 68 Year
  Sex: Male
  Weight: 65 kg

DRUGS (1)
  1. KEYTRUDA [Suspect]
     Active Substance: PEMBROLIZUMAB
     Indication: SQUAMOUS CELL CARCINOMA OF LUNG
     Dosage: 200 MG, Q3W
     Route: 041
     Dates: start: 20170512, end: 20170512

REACTIONS (7)
  - Arterial perforation [Unknown]
  - Asphyxia [Fatal]
  - Lung infiltration [Fatal]
  - Neoplasm progression [Fatal]
  - Death [Fatal]
  - Shock haemorrhagic [Fatal]
  - Haemoptysis [Fatal]

NARRATIVE: CASE EVENT DATE: 20170515
